FAERS Safety Report 10160078 (Version 1)
Quarter: 2014Q2

REPORT INFORMATION
  Report Type: Spontaneous
  Country: US (occurrence: None)
  Receive Date: 20140506
  Receipt Date: 20140506
  Transmission Date: 20141212
  Serious: No
  Sender: FDA-Public Use
  Company Number: US-ALSI-201400068

PATIENT
  Age: 63 Year
  Sex: Female

DRUGS (1)
  1. CARBON DIOXIDE [Suspect]
     Indication: LAPAROSCOPIC SURGERY
     Dosage: 3 I TOTAL INTRAPERITONEAL
     Route: 033

REACTIONS (1)
  - Subcutaneous emphysema [None]
